FAERS Safety Report 7551224-6 (Version None)
Quarter: 2011Q2

REPORT INFORMATION
  Report Type: 
  Country: None (occurrence: None)
  Receive Date: 20110616
  Receipt Date: 20110607
  Transmission Date: 20111010
  Serious: Yes (Other)
  Sender: FDA-Public Use
  Company Number: PHHY2011DE50581

PATIENT
  Sex: Female

DRUGS (1)
  1. ZOMETA [Suspect]
     Dosage: 4 MG/5 ML, EVERY 4 WEEKS
     Route: 042
     Dates: start: 20100101, end: 20101201

REACTIONS (1)
  - OSTEONECROSIS OF JAW [None]
